FAERS Safety Report 4790228-3 (Version None)
Quarter: 2005Q4

REPORT INFORMATION
  Report Type: 
  Country: None (occurrence: None)
  Receive Date: 20051005
  Receipt Date: 20051005
  Transmission Date: 20060501
  Serious: Yes (Other)
  Sender: FDA-Public Use
  Company Number: None

PATIENT
  Age: 63 Year
  Sex: Male
  Weight: 93.441 kg

DRUGS (1)
  1. TRAMADOL HCL [Suspect]
     Indication: INTERVERTEBRAL DISC DISORDER
     Dosage: 1-2 PO TID
     Route: 048
     Dates: start: 20031001

REACTIONS (1)
  - DRUG HYPERSENSITIVITY [None]
